FAERS Safety Report 9641608 (Version 1)
Quarter: 2013Q4

REPORT INFORMATION
  Report Type: Spontaneous
  Country: US (occurrence: US)
  Receive Date: 20131023
  Receipt Date: 20131023
  Transmission Date: 20140711
  Serious: Yes (Death)
  Sender: FDA-Public Use
  Company Number: US-GLAXOSMITHKLINE-A1046375A

PATIENT
  Age: 56 Year
  Sex: Male

DRUGS (7)
  1. PROMACTA [Suspect]
     Indication: PLASMA CELL MYELOMA
     Dosage: 50MG PER DAY
     Route: 048
     Dates: start: 20130808
  2. VELCADE [Concomitant]
  3. ASPIRIN [Concomitant]
  4. CYMBALTA [Concomitant]
  5. OMEPRAZOLE [Concomitant]
  6. LORAZEPAM [Concomitant]
  7. SERTRALINE HYDROCHLORIDE [Concomitant]

REACTIONS (1)
  - Disease progression [Fatal]
